FAERS Safety Report 17565387 (Version 4)
Quarter: 2020Q2

REPORT INFORMATION
  Report Type: Spontaneous
  Country: US (occurrence: US)
  Receive Date: 20200320
  Receipt Date: 20200611
  Transmission Date: 20200713
  Serious: No
  Sender: FDA-Public Use
  Company Number: US-PFIZER INC-2020117381

PATIENT
  Age: 65 Year
  Sex: Female

DRUGS (2)
  1. XELJANZ [Suspect]
     Active Substance: TOFACITINIB CITRATE
     Dosage: 5 MG, 1X/DAY (SHE ONLY TAKES 1 TAB A DAY)
     Route: 048
     Dates: start: 201903
  2. XELJANZ [Suspect]
     Active Substance: TOFACITINIB CITRATE
     Indication: PSORIATIC ARTHROPATHY
     Dosage: 5 MG, 2X/DAY
     Route: 048
     Dates: start: 201903

REACTIONS (5)
  - Headache [Unknown]
  - Malaise [Unknown]
  - Nausea [Unknown]
  - Stomatitis [Unknown]
  - Herpes zoster [Unknown]
